FAERS Safety Report 10188951 (Version 2)
Quarter: 2014Q2

REPORT INFORMATION
  Report Type: Spontaneous
  Country: US (occurrence: US)
  Receive Date: 20140522
  Receipt Date: 20140616
  Transmission Date: 20141212
  Serious: No
  Sender: FDA-Public Use
  Company Number: US-PFIZER INC-2014138989

PATIENT
  Age: 55 Year
  Sex: Female
  Weight: 58.96 kg

DRUGS (8)
  1. PANTOPRAZOLE [Suspect]
     Indication: GASTRIC ULCER
     Dosage: 40 MG, 1X/DAY
     Route: 048
     Dates: start: 20140515, end: 20140519
  2. PANTOPRAZOLE [Suspect]
     Indication: DUODENAL ULCER
  3. FIORINAL [Concomitant]
     Dosage: UNK (PRN)
  4. EXCEDRIN (ASPIRIN/CAFFEINE/PARACETAMOL) [Concomitant]
     Dosage: UNK (PRN)
  5. THYROID [Concomitant]
     Dosage: UNK
  6. BIOTIN [Concomitant]
     Dosage: UNK
  7. CALCIUM [Concomitant]
     Dosage: UNK
  8. BIFERA [Concomitant]

REACTIONS (4)
  - Drug ineffective [Not Recovered/Not Resolved]
  - Product lot number issue [Unknown]
  - Abdominal distension [Recovered/Resolved]
  - Abdominal pain [Recovered/Resolved]
